FAERS Safety Report 6706431-9 (Version None)
Quarter: 2010Q2

REPORT INFORMATION
  Report Type: 
  Country: None (occurrence: None)
  Receive Date: 20100503
  Receipt Date: 20100423
  Transmission Date: 20101027
  Serious: Yes (Hospitalization)
  Sender: FDA-Public Use
  Company Number: PHHO2010NL04838

PATIENT
  Sex: Male
  Weight: 99.4 kg

DRUGS (6)
  1. AEB071 AEB+GELCAP [Suspect]
     Indication: RENAL TRANSPLANT
     Dosage: 200 MG, UNK
     Route: 048
     Dates: start: 20091217
  2. CERTICAN [Suspect]
     Indication: RENAL TRANSPLANT
     Dosage: 1MG
     Route: 048
     Dates: start: 20091217
  3. PREDNISOLONE [Concomitant]
     Indication: RENAL TRANSPLANT
     Dosage: UNK
     Dates: start: 20091216
  4. SIMULECT [Concomitant]
     Indication: RENAL TRANSPLANT
     Dosage: UNK
     Dates: start: 20091216, end: 20091220
  5. ANTICOAGULANTS [Concomitant]
  6. HEPARIN [Concomitant]

REACTIONS (8)
  - BLOOD CREATININE INCREASED [None]
  - HYDRONEPHROSIS [None]
  - KIDNEY TRANSPLANT REJECTION [None]
  - LYMPHOCELE [None]
  - NEPHROSTOMY TUBE PLACEMENT [None]
  - POLYOMAVIRUS-ASSOCIATED NEPHROPATHY [None]
  - SURGERY [None]
  - URETERIC OBSTRUCTION [None]
